FAERS Safety Report 4782585-9 (Version None)
Quarter: 2005Q3

REPORT INFORMATION
  Report Type: 
  Country: None (occurrence: None)
  Receive Date: 20050929
  Receipt Date: 20050406
  Transmission Date: 20060218
  Serious: No
  Sender: FDA-Public Use
  Company Number: 401352

PATIENT
  Age: 79 Year
  Sex: Male

DRUGS (3)
  1. COREG [Suspect]
     Indication: HYPERTENSION
     Dosage: 25MG TWICE PER DAY
     Route: 048
     Dates: end: 20050405
  2. ASPIRIN [Concomitant]
  3. SPIRONOLACTONE [Concomitant]

REACTIONS (3)
  - BREAST PAIN [None]
  - HYPERTROPHY BREAST [None]
  - NIPPLE PAIN [None]
